FAERS Safety Report 8300980-8 (Version None)
Quarter: 2012Q2

REPORT INFORMATION
  Report Type: 
  Country: None (occurrence: None)
  Receive Date: 20120420
  Receipt Date: 20120415
  Transmission Date: 20120825
  Serious: No
  Sender: FDA-Public Use
  Company Number: US-BAYER-2012-038114

PATIENT

DRUGS (2)
  1. ALEVE (CAPLET) [Suspect]
     Indication: ARTHRITIS
     Dosage: 2, OTHER FREQUENCY
     Route: 048
  2. ALEVE (CAPLET) [Suspect]
     Indication: ARTHRITIS
     Dosage: 2 TABS EVERY 7 HOURS
     Route: 048

REACTIONS (1)
  - NO ADVERSE EVENT [None]
